FAERS Safety Report 19717377 (Version 1)
Quarter: 2021Q3

REPORT INFORMATION
  Report Type: Spontaneous
  Country: US (occurrence: US)
  Receive Date: 20210819
  Receipt Date: 20210819
  Transmission Date: 20211014
  Serious: No
  Sender: FDA-Public Use
  Company Number: US-JNJFOC-20210827981

PATIENT
  Sex: Male

DRUGS (1)
  1. RISPERDAL [Suspect]
     Active Substance: RISPERIDONE
     Indication: HEAD INJURY
     Route: 048

REACTIONS (7)
  - Off label use [Unknown]
  - Product use in unapproved indication [Unknown]
  - Tic [Recovered/Resolved]
  - Product availability issue [Unknown]
  - Adverse event [Recovered/Resolved]
  - Weight increased [Recovered/Resolved]
  - Withdrawal syndrome [Unknown]
